FAERS Safety Report 9077419 (Version 1)
Quarter: 2013Q1

REPORT INFORMATION
  Report Type: Report from Study
  Country: US (occurrence: US)
  Receive Date: 20130130
  Receipt Date: 20130130
  Transmission Date: 20140127
  Serious: No
  Sender: FDA-Public Use
  Company Number: US-ABBOTT-12P-163-0956916-00

PATIENT
  Age: 41 Year
  Sex: Male

DRUGS (9)
  1. HUMIRA 40 MG/0.8 ML PEN [Suspect]
     Indication: COLITIS ULCERATIVE
     Dosage: LOADING DOSE
     Dates: start: 20120612, end: 20120612
  2. HUMIRA 40 MG/0.8 ML PEN [Suspect]
     Dosage: LOADING DOSE
     Dates: start: 20120626, end: 20120626
  3. HUMIRA 40 MG/0.8 ML PEN [Suspect]
     Dates: start: 20120710
  4. ASACOL HD [Concomitant]
     Indication: COLITIS ULCERATIVE
     Dosage: 6 PILLS DAILY
  5. MULTIVITAMIN [Concomitant]
     Indication: PRODUCT USED FOR UNKNOWN INDICATION
     Dosage: 1 TAB DAILY
  6. FISH OIL [Concomitant]
     Indication: PRODUCT USED FOR UNKNOWN INDICATION
     Dosage: 1000 MG, 1 TAB TWICE DAILY
  7. VITAMIN D [Concomitant]
     Indication: PROPHYLAXIS
     Dosage: 1000 MG, 1 TAB TWICE DAILY
  8. IRON [Concomitant]
     Indication: ANAEMIA
     Dosage: 50 MG, 1 TAB TWICE DAILY
  9. PREDNISONE [Concomitant]
     Indication: PRODUCT USED FOR UNKNOWN INDICATION
     Dosage: 1 TAB DAILY
     Dates: end: 20120704

REACTIONS (2)
  - Injection site haemorrhage [Recovering/Resolving]
  - Injection site bruising [Recovering/Resolving]
